FAERS Safety Report 9154262 (Version 1)
Quarter: 2013Q1

REPORT INFORMATION
  Report Type: Spontaneous
  Country: US (occurrence: None)
  Receive Date: 20130306
  Receipt Date: 20130306
  Transmission Date: 20140127
  Serious: Yes (Other)
  Sender: FDA-Public Use
  Company Number: None

PATIENT
  Sex: 0

DRUGS (1)
  1. FLUOCINOLONE [Suspect]
     Dates: start: 20121101, end: 20121115

REACTIONS (5)
  - Application site reaction [None]
  - Application site ulcer [None]
  - Application site haemorrhage [None]
  - Application site irritation [None]
  - Product substitution issue [None]
